FAERS Safety Report 10067353 (Version 2)
Quarter: 2014Q2

REPORT INFORMATION
  Report Type: Spontaneous
  Country: US (occurrence: None)
  Receive Date: 20140407
  Receipt Date: 20140416
  Transmission Date: 20141212
  Serious: Yes (Hospitalization)
  Sender: FDA-Public Use
  Company Number: AUR-APL-2014-04037

PATIENT
  Age: 13 Year
  Sex: Female

DRUGS (4)
  1. AMLODIPINE [Suspect]
     Indication: BLOOD PRESSURE INCREASED
  2. AMLODIPINE [Suspect]
     Indication: SWELLING
  3. FUROSEMIDE [Suspect]
     Indication: SWELLING
  4. FUROSEMIDE [Suspect]
     Indication: BLOOD PRESSURE INCREASED

REACTIONS (6)
  - Renal failure acute [None]
  - Proteinuria [None]
  - Swelling face [None]
  - Peripheral swelling [None]
  - Joint swelling [None]
  - Malaise [None]
